FAERS Safety Report 21583745 (Version 1)
Quarter: 2022Q4

REPORT INFORMATION
  Report Type: Report from Study
  Country: US (occurrence: US)
  Receive Date: 20221111
  Receipt Date: 20221111
  Transmission Date: 20230112
  Serious: No
  Sender: FDA-Public Use
  Company Number: US-ABBVIE-4143047

PATIENT
  Sex: Female

DRUGS (3)
  1. HUMIRA [Suspect]
     Active Substance: ADALIMUMAB
     Indication: Psoriasis
     Route: 058
  2. HUMIRA [Suspect]
     Active Substance: ADALIMUMAB
     Indication: Hidradenitis
  3. IBUPROFEN [Concomitant]
     Active Substance: IBUPROFEN
     Indication: Product used for unknown indication

REACTIONS (2)
  - Hypothyroidism [Unknown]
  - Adverse drug reaction [Unknown]
